FAERS Safety Report 13580748 (Version 2)
Quarter: 2017Q2

REPORT INFORMATION
  Report Type: Spontaneous
  Country: US (occurrence: US)
  Receive Date: 20170525
  Receipt Date: 20170622
  Transmission Date: 20170830
  Serious: Yes (Other)
  Sender: FDA-Public Use
  Company Number: US-PFIZER INC-2017217164

PATIENT
  Sex: Male

DRUGS (1)
  1. ROBITUSSIN COUGH AND COLD CF MAX [Suspect]
     Active Substance: DEXTROMETHORPHAN HYDROBROMIDE\GUAIFENESIN\PHENYLEPHRINE HYDROCHLORIDE
     Dosage: UNK

REACTIONS (1)
  - Choking [Unknown]
